FAERS Safety Report 21342218 (Version 1)
Quarter: 2022Q3

REPORT INFORMATION
  Report Type: Spontaneous
  Country: US (occurrence: None)
  Receive Date: 20220916
  Receipt Date: 20220916
  Transmission Date: 20221027
  Serious: Yes (Other)
  Sender: FDA-Public Use
  Company Number: US-Hikma Pharmaceuticals USA Inc.-US-H14001-22-02289

PATIENT
  Age: 40 Year
  Sex: Male

DRUGS (12)
  1. CEFOXITIN [Suspect]
     Active Substance: CEFOXITIN SODIUM
     Indication: Mycobacterium abscessus infection
     Route: 065
  2. TEDIZOLID [Concomitant]
     Active Substance: TEDIZOLID
     Indication: Mycobacterium abscessus infection
     Route: 065
  3. IMIPENEM [Concomitant]
     Active Substance: IMIPENEM
     Indication: Mycobacterium abscessus infection
     Route: 065
  4. TIGECYCLINE [Concomitant]
     Active Substance: TIGECYCLINE
     Indication: Mycobacterium abscessus infection
     Route: 042
  5. AZITHROMYCIN [Concomitant]
     Active Substance: AZITHROMYCIN
     Indication: Mycobacterium abscessus infection
     Route: 065
  6. MOXIFLOXACIN [Concomitant]
     Active Substance: MOXIFLOXACIN
     Indication: Mycobacterium abscessus infection
     Route: 065
  7. LEVOFLOXACIN [Concomitant]
     Active Substance: LEVOFLOXACIN
     Indication: Mycobacterium abscessus infection
     Route: 065
  8. AMIKACIN [Concomitant]
     Active Substance: AMIKACIN
     Indication: Mycobacterium abscessus infection
     Dosage: 15 MG/KG QD OR 20 MG/KG TIW
     Route: 065
  9. AMIKACIN [Concomitant]
     Active Substance: AMIKACIN
     Dosage: 20 MG OR 30 MG
     Route: 042
  10. LINEZOLID [Concomitant]
     Active Substance: LINEZOLID
     Indication: Mycobacterium abscessus infection
     Route: 065
  11. LINEZOLID [Concomitant]
     Active Substance: LINEZOLID
     Route: 065
  12. CLARITHROMYCIN [Concomitant]
     Active Substance: CLARITHROMYCIN
     Indication: Mycobacterium abscessus infection
     Route: 065

REACTIONS (1)
  - Drug-induced liver injury [Recovering/Resolving]
